FAERS Safety Report 7316265-2 (Version None)
Quarter: 2011Q1

REPORT INFORMATION
  Report Type: 
  Country: None (occurrence: None)
  Receive Date: 20110225
  Receipt Date: 20110214
  Transmission Date: 20110831
  Serious: Yes (Hospitalization)
  Sender: FDA-Public Use
  Company Number: FR-GENENTECH-314092

PATIENT
  Sex: Male

DRUGS (5)
  1. MABTHERA [Suspect]
     Indication: LYMPHOMA
     Dosage: UNK
     Route: 065
  2. DOXORUBICIN [Concomitant]
     Indication: LYMPHOMA
     Dosage: UNK
  3. VINCRISTINE [Concomitant]
     Indication: LYMPHOMA
     Dosage: UNK
  4. PREDNISONE [Concomitant]
     Indication: LYMPHOMA
     Dosage: UNK
  5. CYCLOPHOSPHAMIDE [Concomitant]
     Indication: LYMPHOMA
     Dosage: UNK

REACTIONS (1)
  - ARTHROPATHY [None]
